FAERS Safety Report 10232359 (Version 1)
Quarter: 2014Q2

REPORT INFORMATION
  Report Type: Spontaneous
  Country: JP (occurrence: JP)
  Receive Date: 20140612
  Receipt Date: 20140612
  Transmission Date: 20141212
  Serious: Yes (Other)
  Sender: FDA-Public Use
  Company Number: JP-ACCORD-024175

PATIENT
  Age: 68 Year
  Sex: Female

DRUGS (1)
  1. DOCETAXEL [Suspect]
     Indication: NON-SMALL CELL LUNG CANCER
     Dosage: 60 MG/M2 ON DAY 1 OF EVERY 21-DAY?CYCLE AS THIRD-LINE CHEMOTHERAPY

REACTIONS (3)
  - Nail disorder [Unknown]
  - Cataract [Unknown]
  - Lacrimation increased [Recovering/Resolving]
